FAERS Safety Report 9757330 (Version 1)
Quarter: 2013Q4

REPORT INFORMATION
  Report Type: Spontaneous
  Country: US (occurrence: US)
  Receive Date: 20131214
  Receipt Date: 20131214
  Transmission Date: 20140711
  Serious: No
  Sender: FDA-Public Use
  Company Number: US-009507513-1312USA005828

PATIENT
  Sex: Male

DRUGS (2)
  1. DULERA [Suspect]
     Dosage: 2 PUFFS IN THE MORNING ORAL INHALATION
     Route: 048
     Dates: start: 2011
  2. DULERA [Suspect]
     Dosage: 2 PUFFS IN THE EVENIN, QPM, ORAL INHALATION
     Route: 048
     Dates: start: 2011

REACTIONS (3)
  - Drug dose omission [Unknown]
  - Product dosage form issue [Unknown]
  - No adverse event [Unknown]
